FAERS Safety Report 7311978-0 (Version None)
Quarter: 2011Q1

REPORT INFORMATION
  Report Type: 
  Country: None (occurrence: None)
  Receive Date: 20110214
  Receipt Date: 20110204
  Transmission Date: 20110831
  Serious: Yes (Other)
  Sender: FDA-Public Use
  Company Number: JHP201100024

PATIENT
  Sex: Male

DRUGS (1)
  1. DANTROLENE SODIUM [Suspect]

REACTIONS (6)
  - DROOLING [None]
  - HYPERTONIA [None]
  - DYSPHAGIA [None]
  - BRAIN INJURY [None]
  - HEAD INJURY [None]
  - ROAD TRAFFIC ACCIDENT [None]
